FAERS Safety Report 6812796-X (Version None)
Quarter: 2010Q3

REPORT INFORMATION
  Report Type: 
  Country: None (occurrence: None)
  Receive Date: 20100701
  Receipt Date: 20100628
  Transmission Date: 20110219
  Serious: Yes (Hospitalization)
  Sender: FDA-Public Use
  Company Number: B0662667A

PATIENT
  Sex: Male

DRUGS (2)
  1. AUGMENTIN '125' [Suspect]
     Indication: TENDONITIS
     Dosage: 500MG THREE TIMES PER DAY
     Route: 048
     Dates: start: 20100520, end: 20100521
  2. OFLOCET [Suspect]
     Indication: PRODUCT USED FOR UNKNOWN INDICATION
     Dosage: 200MG UNKNOWN
     Route: 048
     Dates: start: 20100521, end: 20100521

REACTIONS (6)
  - CONDITION AGGRAVATED [None]
  - HYPERHIDROSIS [None]
  - HYPOTENSION [None]
  - OFF LABEL USE [None]
  - PYREXIA [None]
  - URTICARIA [None]
